FAERS Safety Report 8325142 (Version 2)
Quarter: 2013Q3

REPORT INFORMATION
  Report Type: Spontaneous
  Country: JP (occurrence: JP)
  Receive Date: 20120106
  Receipt Date: 20130717
  Transmission Date: 20140515
  Serious: Yes (Hospitalization, Other)
  Sender: FDA-Public Use
  Company Number: JP-ELI_LILLY_AND_COMPANY-JP201201001082

PATIENT
  Sex: Female

DRUGS (1)
  1. FORTEO [Suspect]
     Dosage: UNK
     Route: 058
     Dates: start: 20101222

REACTIONS (11)
  - Road traffic accident [Unknown]
  - Suicidal ideation [Unknown]
  - Eyelid oedema [Unknown]
  - Ageusia [Unknown]
  - Oral discomfort [Unknown]
  - Hypoaesthesia [Unknown]
  - Visual acuity reduced [Unknown]
  - Headache [Unknown]
  - Pharyngeal oedema [Unknown]
  - Erythema [Unknown]
  - Drug ineffective [Unknown]
